FAERS Safety Report 4708964-3 (Version None)
Quarter: 2005Q3

REPORT INFORMATION
  Report Type: 
  Country: None (occurrence: None)
  Receive Date: 20050705
  Receipt Date: 20050621
  Transmission Date: 20060218
  Serious: No
  Sender: FDA-Public Use
  Company Number: 2005093098

PATIENT
  Age: 45 Year
  Sex: Female

DRUGS (3)
  1. ZARONTIN SYRUP [Suspect]
     Indication: EPILEPSY
     Dosage: (2 IN 1 D), ORAL
     Route: 048
  2. PHENOBARBITAL TAB [Suspect]
  3. CLOBAZAM (CLOBAZAM) [Concomitant]

REACTIONS (4)
  - CONDITION AGGRAVATED [None]
  - DRUG ADMINISTRATION ERROR [None]
  - PETIT MAL EPILEPSY [None]
  - PHARMACEUTICAL PRODUCT COMPLAINT [None]
